FAERS Safety Report 24583001 (Version 1)
Quarter: 2024Q4

REPORT INFORMATION
  Report Type: Spontaneous
  Country: US (occurrence: US)
  Receive Date: 20241106
  Receipt Date: 20241106
  Transmission Date: 20250115
  Serious: Yes (Other)
  Sender: UCB
  Company Number: US-UCBSA-2024040045

PATIENT
  Sex: Male

DRUGS (3)
  1. VIMPAT [Suspect]
     Active Substance: LACOSAMIDE
     Indication: Seizure
     Dosage: 200MG AM, 250MG PM AND 200MG AT NIGHT.
     Route: 048
     Dates: start: 2009, end: 202408
  2. VIMPAT [Suspect]
     Active Substance: LACOSAMIDE
     Dosage: 200MG AM, 250MG PM AND 200MG AT NIGHT.
     Route: 048
  3. LACOSAMIDE [Suspect]
     Active Substance: LACOSAMIDE
     Indication: Seizure
     Dosage: UNK
     Dates: start: 202408, end: 202408

REACTIONS (8)
  - Seizure [Recovered/Resolved]
  - Wrong technique in product usage process [Unknown]
  - Product availability issue [Unknown]
  - Therapy interrupted [Unknown]
  - Insurance issue [Unknown]
  - Prescribed overdose [Unknown]
  - Inappropriate schedule of product administration [Unknown]
  - Product substitution issue [Unknown]

NARRATIVE: CASE EVENT DATE: 20090101
